FAERS Safety Report 6156955-0 (Version None)
Quarter: 2009Q2

REPORT INFORMATION
  Report Type: 
  Country: None (occurrence: None)
  Receive Date: 20090416
  Receipt Date: 20090407
  Transmission Date: 20091009
  Serious: Yes (Life-Threatening, Hospitalization)
  Sender: FDA-Public Use
  Company Number: B0568915A

PATIENT
  Age: 71 Year
  Sex: Male

DRUGS (2)
  1. ARIXTRA [Suspect]
     Indication: PULMONARY EMBOLISM
     Route: 065
     Dates: start: 20090315, end: 20090315
  2. OMNIPAQUE 140 [Suspect]
     Indication: COMPUTERISED TOMOGRAM
     Route: 065
     Dates: start: 20090315, end: 20090315

REACTIONS (4)
  - ANAPHYLACTIC SHOCK [None]
  - FACE OEDEMA [None]
  - HYPOTENSION [None]
  - LIP OEDEMA [None]
